FAERS Safety Report 8884217 (Version 2)
Quarter: 2014Q1

REPORT INFORMATION
  Report Type: Spontaneous
  Country: US (occurrence: US)
  Receive Date: 20121104
  Receipt Date: 20140226
  Transmission Date: 20141002
  Serious: Yes (Hospitalization, Other)
  Sender: FDA-Public Use
  Company Number: US-ASTRAZENECA-2012SE81187

PATIENT
  Age: 77 Year
  Sex: Male
  Weight: 94.3 kg

DRUGS (23)
  1. TOPROL XL [Suspect]
     Route: 048
  2. CRESTOR [Suspect]
     Indication: BLOOD CHOLESTEROL ABNORMAL
     Dosage: HALF OF CRESTOR 20 MG, FREQUENCY UNKNOWN
     Route: 048
     Dates: start: 2012
  3. CRESTOR [Suspect]
     Indication: BLOOD CHOLESTEROL ABNORMAL
     Route: 048
     Dates: start: 2013
  4. CRESTOR [Suspect]
     Indication: BLOOD CHOLESTEROL ABNORMAL
     Route: 048
     Dates: start: 20131206
  5. CRESTOR [Suspect]
     Indication: BLOOD CHOLESTEROL ABNORMAL
     Route: 048
     Dates: start: 2012
  6. CRESTOR [Suspect]
     Indication: BLOOD CHOLESTEROL ABNORMAL
     Route: 048
  7. FISH OIL [Concomitant]
     Indication: BLOOD CHOLESTEROL ABNORMAL
  8. TYLENOL [Concomitant]
     Indication: ARTHRITIS
  9. TYLENOL [Concomitant]
     Indication: ARTHRITIS
  10. CELEXA [Concomitant]
     Indication: DEPRESSION
  11. CLOPIDOGREL [Concomitant]
     Indication: ANTICOAGULANT THERAPY
     Dates: start: 2004
  12. LASIX [Concomitant]
     Indication: RENAL DISORDER
     Dates: start: 2004
  13. AMLODIPINE [Concomitant]
     Indication: HYPERTENSION
     Dates: start: 2013
  14. AMLODIPINE [Concomitant]
     Indication: HYPERTENSION
     Dates: start: 2013
  15. ZANTAC [Concomitant]
     Indication: GASTROOESOPHAGEAL REFLUX DISEASE
  16. GLIPIZIDE [Concomitant]
     Indication: DIABETES MELLITUS
  17. ASPIRIN [Concomitant]
  18. LORATIDINE [Concomitant]
     Indication: MULTIPLE ALLERGIES
     Dates: start: 2014
  19. BENICAR [Concomitant]
     Indication: RENAL DISORDER
     Dosage: 10/6.25MG DAILY
  20. BENICAR [Concomitant]
     Indication: RENAL DISORDER
     Dosage: 20/12.5 MG DAILY
  21. BENICAR [Concomitant]
     Indication: RENAL DISORDER
     Dosage: 40/25MG DAILY
     Dates: start: 2006
  22. DIABETES MEDICATION [Concomitant]
     Indication: DIABETES MELLITUS
  23. ANEMIA MEDICATION [Concomitant]
     Indication: ANAEMIA

REACTIONS (18)
  - Arterial occlusive disease [Unknown]
  - Cerebrovascular accident [Recovered/Resolved with Sequelae]
  - Myocardial infarction [Recovered/Resolved with Sequelae]
  - Confusional state [Unknown]
  - Delusion [Unknown]
  - Convulsion [Recovered/Resolved with Sequelae]
  - Angiopathy [Not Recovered/Not Resolved]
  - Renal function test abnormal [Unknown]
  - Dementia [Unknown]
  - Disturbance in attention [Not Recovered/Not Resolved]
  - Palpitations [Unknown]
  - Gait disturbance [Not Recovered/Not Resolved]
  - Speech disorder [Not Recovered/Not Resolved]
  - Nocturia [Not Recovered/Not Resolved]
  - Cardiac murmur [Unknown]
  - Hypersomnia [Not Recovered/Not Resolved]
  - Intentional drug misuse [Unknown]
  - Drug dose omission [Not Recovered/Not Resolved]
